FAERS Safety Report 24567186 (Version 1)
Quarter: 2024Q4

REPORT INFORMATION
  Report Type: Spontaneous
  Country: RO (occurrence: RO)
  Receive Date: 20241030
  Receipt Date: 20241030
  Transmission Date: 20250115
  Serious: Yes (Hospitalization, Other)
  Sender: BRISTOL-MYERS SQUIBB COMPANY
  Company Number: RO-002147023-NVSC2024RO200120

PATIENT
  Age: 75 Year
  Sex: Male

DRUGS (8)
  1. DASATINIB [Suspect]
     Active Substance: DASATINIB
     Indication: Chronic myeloid leukaemia
     Dosage: UNK
     Dates: start: 201808
  2. DASATINIB [Suspect]
     Active Substance: DASATINIB
     Dosage: UNK (24 MONTHS OF TREATMENT WITH DASATINIB)
     Dates: start: 202009
  3. SCEMBLIX [Suspect]
     Active Substance: ASCIMINIB HYDROCHLORIDE
     Indication: Chronic myeloid leukaemia
     Dosage: 40 MG, BID
     Dates: start: 202403
  4. SCEMBLIX [Suspect]
     Active Substance: ASCIMINIB HYDROCHLORIDE
     Dosage: 20 MG, BID
     Dates: end: 202409
  5. NILOTINIB [Suspect]
     Active Substance: NILOTINIB
     Indication: Chronic myeloid leukaemia
     Dosage: UNK
     Dates: start: 201804, end: 201807
  6. BESREMI [ROPEGINTERFERON ALFA-2B] [Concomitant]
     Indication: Product used for unknown indication
     Dosage: UNK
     Dates: start: 202405
  7. BESREMI [ROPEGINTERFERON ALFA-2B] [Concomitant]
     Dosage: 200 UG, Q2W
     Dates: end: 202409
  8. HYDROXYUREA [Concomitant]
     Active Substance: HYDROXYUREA
     Indication: Product used for unknown indication
     Dosage: UNK

REACTIONS (29)
  - Cholangitis [Unknown]
  - Cholelithiasis [Unknown]
  - Escherichia sepsis [Unknown]
  - Hepatotoxicity [Unknown]
  - Cataract [Unknown]
  - Hepatic cytolysis [Recovered/Resolved]
  - Cholestasis [Recovered/Resolved]
  - Myocardial infarction [Unknown]
  - Angina unstable [Unknown]
  - Arrhythmia [Unknown]
  - Left ventricular failure [Unknown]
  - Cardiac failure congestive [Unknown]
  - Renal impairment [Unknown]
  - Coronary artery disease [Unknown]
  - Ocular discomfort [Unknown]
  - Conjunctivitis [Unknown]
  - Pseudophakia [Unknown]
  - Gene mutation identification test positive [Unknown]
  - Nausea [Unknown]
  - Abdominal pain [Unknown]
  - Neutrophilia [Unknown]
  - Monocytosis [Unknown]
  - Basophilia [Unknown]
  - Hypertension [Unknown]
  - Fluid retention [Unknown]
  - Angiopathy [Unknown]
  - Hyperuricaemia [Unknown]
  - Sinus tachycardia [Unknown]
  - Atrioventricular block [Unknown]

NARRATIVE: CASE EVENT DATE: 20240401
